FAERS Safety Report 19447083 (Version 1)
Quarter: 2021Q2

REPORT INFORMATION
  Report Type: Spontaneous
  Country: US (occurrence: US)
  Receive Date: 20210621
  Receipt Date: 20210621
  Transmission Date: 20210717
  Serious: No
  Sender: FDA-Public Use
  Company Number: None

PATIENT
  Age: 73 Year
  Sex: Male
  Weight: 83 kg

DRUGS (1)
  1. NINTEDANIB [NINTEDANIB] 150MG CAP, ORAL [Suspect]
     Active Substance: NINTEDANIB
     Indication: PULMONARY FIBROSIS
     Route: 048
     Dates: start: 20210212, end: 20210408

REACTIONS (5)
  - Colonic abscess [None]
  - Diarrhoea [None]
  - Large intestine perforation [None]
  - Weight decreased [None]
  - Dysphagia [None]

NARRATIVE: CASE EVENT DATE: 20210408
